FAERS Safety Report 6236927-8 (Version None)
Quarter: 2009Q2

REPORT INFORMATION
  Report Type: 
  Country: None (occurrence: None)
  Receive Date: 20090619
  Receipt Date: 20090402
  Transmission Date: 20091009
  Serious: No
  Sender: FDA-Public Use
  Company Number: US-ASTRAZENECA-2009UW01610

PATIENT
  Sex: Female

DRUGS (6)
  1. SYMBICORT [Suspect]
     Indication: ASTHMA
     Dosage: 160/4.5 UG, 2 PUFFS
     Route: 055
     Dates: start: 20080901
  2. DOXEPIN [Concomitant]
  3. METHADONE [Concomitant]
  4. PLAVIX [Concomitant]
  5. PROZAC [Concomitant]
  6. MIRALAX [Concomitant]

REACTIONS (2)
  - DRUG DOSE OMISSION [None]
  - DYSPNOEA [None]
